FAERS Safety Report 7691913-6 (Version None)
Quarter: 2011Q3

REPORT INFORMATION
  Report Type: 
  Country: None (occurrence: None)
  Receive Date: 20110818
  Receipt Date: 20110809
  Transmission Date: 20111222
  Serious: Yes (Other)
  Sender: FDA-Public Use
  Company Number: US-BAYER-201037467NA

PATIENT
  Age: 30 Year
  Sex: Female

DRUGS (12)
  1. HYDROCODONE [Concomitant]
     Dosage: UNK
     Route: 048
     Dates: start: 20071012, end: 20080220
  2. BICARBONAT [Concomitant]
     Dosage: UNK
     Route: 048
     Dates: start: 20071012
  3. YAZ [Suspect]
     Indication: ORAL CONTRACEPTION
     Dosage: UNK UNK, UNK
     Route: 048
     Dates: start: 20071009, end: 20090801
  4. TORADOL [Concomitant]
     Dosage: 30 MG, UNK
     Route: 042
     Dates: start: 20071012
  5. MORPHINE [Concomitant]
     Dosage: 2 MG, UNK
     Route: 042
     Dates: start: 20071012
  6. REGLAN [Concomitant]
     Dosage: 10 MG, UNK
     Route: 042
     Dates: start: 20071012
  7. WELLBUTRIN [Concomitant]
     Dosage: 200 MG, UNK
     Route: 048
     Dates: start: 20070830, end: 20080625
  8. YASMIN [Suspect]
     Indication: ORAL CONTRACEPTION
     Dosage: UNK UNK, UNK
     Route: 048
     Dates: start: 20061129, end: 20071008
  9. ZOLOFT [Concomitant]
     Dosage: 50 MG, UNK
     Route: 048
     Dates: start: 20070608, end: 20080625
  10. METOCLOPRAMIDE [Concomitant]
     Dosage: 10 MG, UNK
     Route: 048
     Dates: start: 20071012
  11. NAPROXEN SODIUM AND PSEUDOEPHEDRINE HYDROCHLORIDE [Concomitant]
     Dosage: 500 MG, UNK
     Route: 048
     Dates: start: 20071012
  12. MAALOX [Concomitant]
     Dosage: UNK
     Route: 048
     Dates: start: 20071012

REACTIONS (3)
  - CHOLELITHIASIS [None]
  - CHOLECYSTECTOMY [None]
  - PAIN [None]
